FAERS Safety Report 25206974 (Version 4)
Quarter: 2025Q2

REPORT INFORMATION
  Report Type: Report from Study
  Country: US (occurrence: US)
  Receive Date: 20250417
  Receipt Date: 20250602
  Transmission Date: 20250716
  Serious: No
  Sender: SUNOVION
  Company Number: US-SMPA-2025SPA003518AA

PATIENT

DRUGS (10)
  1. ORGOVYX [Suspect]
     Active Substance: RELUGOLIX
     Indication: Prostate cancer
     Dosage: 120 MG, QD
     Route: 048
     Dates: start: 20250306
  2. ASPIRIN [Concomitant]
     Active Substance: ASPIRIN
     Route: 065
  3. Citracal calcium pearls + d3 [Concomitant]
     Route: 065
  4. Doterra Balance [Concomitant]
     Route: 065
  5. VITAMIN D3 [Concomitant]
     Active Substance: CHOLECALCIFEROL
     Route: 065
  6. LUTEIN [Concomitant]
     Active Substance: LUTEIN
     Route: 065
  7. ROSUVASTATIN [Concomitant]
     Active Substance: ROSUVASTATIN
     Route: 065
  8. HERBALS\TURMERIC [Concomitant]
     Active Substance: HERBALS\TURMERIC
     Route: 065
  9. XYZAL [Concomitant]
     Active Substance: LEVOCETIRIZINE DIHYDROCHLORIDE
     Route: 065
  10. DIMETHYL SULFONE [Concomitant]
     Active Substance: DIMETHYL SULFONE
     Route: 065

REACTIONS (5)
  - Diarrhoea [Unknown]
  - Hot flush [Unknown]
  - Arthralgia [Unknown]
  - Fatigue [Unknown]
  - Incorrect dose administered [Unknown]
